FAERS Safety Report 4484487-4 (Version None)
Quarter: 2004Q3

REPORT INFORMATION
  Report Type: 
  Country: None (occurrence: None)
  Receive Date: 20040921
  Receipt Date: 20031210
  Transmission Date: 20050211
  Serious: Yes (Hospitalization)
  Sender: FDA-Public Use
  Company Number: 163-20785-03120336 (0)

PATIENT
  Age: 63 Year
  Sex: Male

DRUGS (2)
  1. THALOMID [Suspect]
     Indication: BRAIN NEOPLASM MALIGNANT
     Dosage: 200 MG, DAILY, DAYS 3-19 ON A 21 CYCLE, ORAL
     Route: 048
     Dates: start: 20031126, end: 20031205
  2. IRINOTECAN (IRINOTECAN) [Suspect]
     Indication: BRAIN NEOPLASM MALIGNANT
     Dosage: 300 MG, DAY 1
     Dates: start: 20031124, end: 20031124

REACTIONS (2)
  - DYSPNOEA [None]
  - PULMONARY EMBOLISM [None]
